FAERS Safety Report 20247451 (Version 1)
Quarter: 2021Q4

REPORT INFORMATION
  Report Type: Spontaneous
  Country: US (occurrence: US)
  Receive Date: 20211229
  Receipt Date: 20211229
  Transmission Date: 20220303
  Serious: No
  Sender: FDA-Public Use
  Company Number: US-SA-SAC20211223000001

PATIENT
  Sex: Female
  Weight: 81 kg

DRUGS (3)
  1. CERDELGA [Suspect]
     Active Substance: ELIGLUSTAT
     Indication: Gaucher^s disease
     Dosage: 84 MG, BID
     Route: 042
     Dates: start: 20200821
  2. CODEINE [Concomitant]
     Active Substance: CODEINE
  3. COVID-19 VACCINE NOS [Concomitant]
     Active Substance: COVID-19 VACCINE NOS
     Indication: COVID-19 prophylaxis

REACTIONS (2)
  - Oesophageal disorder [Unknown]
  - Intentional dose omission [Unknown]
